FAERS Safety Report 11401354 (Version 1)
Quarter: 2015Q3

REPORT INFORMATION
  Report Type: Spontaneous
  Country: DE (occurrence: CO)
  Receive Date: 20150820
  Receipt Date: 20150820
  Transmission Date: 20151125
  Serious: Yes (Other)
  Sender: FDA-Public Use
  Company Number: DE-SPECTRUM PHARMACEUTICALS, INC.-15-F-CO-00356

PATIENT
  Age: 56 Year
  Sex: Male

DRUGS (1)
  1. FOLOTYN [Suspect]
     Active Substance: PRALATREXATE
     Indication: LYMPHOMA
     Dosage: UNK, QW
     Route: 042
     Dates: start: 20150708, end: 20150708

REACTIONS (2)
  - Pruritus generalised [Unknown]
  - Urticaria [Unknown]

NARRATIVE: CASE EVENT DATE: 20150708
